FAERS Safety Report 16320303 (Version 1)
Quarter: 2019Q2

REPORT INFORMATION
  Report Type: Spontaneous
  Country: US (occurrence: US)
  Receive Date: 20190410
  Receipt Date: 20190410
  Transmission Date: 20190711
  Serious: No
  Sender: FDA-Public Use
  Company Number: None

PATIENT
  Sex: Female

DRUGS (1)
  1. HUMIRA [Suspect]
     Active Substance: ADALIMUMAB
     Indication: RHEUMATOID ARTHRITIS
     Dosage: ?          OTHER FREQUENCY:EVERY 14;?
     Route: 058
     Dates: start: 20180728

REACTIONS (6)
  - Impaired healing [None]
  - Therapy cessation [None]
  - Musculoskeletal disorder [None]
  - Nerve injury [None]
  - Immune system disorder [None]
  - Drug hypersensitivity [None]
